FAERS Safety Report 14072865 (Version 1)
Quarter: 2017Q4

REPORT INFORMATION
  Report Type: Spontaneous
  Country: US (occurrence: US)
  Receive Date: 20171010
  Receipt Date: 20171010
  Transmission Date: 20180321
  Serious: No
  Sender: FDA-Public Use
  Company Number: US-JNJFOC-20170926091

PATIENT
  Age: 14 Year
  Sex: Female
  Weight: 43.09 kg

DRUGS (2)
  1. CHILDRENS MOTRIN [Suspect]
     Active Substance: IBUPROFEN
     Indication: HYPERSENSITIVITY
     Route: 048
  2. CHILDRENS MOTRIN [Suspect]
     Active Substance: IBUPROFEN
     Indication: HYPERSENSITIVITY
     Route: 048

REACTIONS (2)
  - Product use in unapproved indication [Unknown]
  - Drug administered to patient of inappropriate age [Unknown]
